FAERS Safety Report 19504289 (Version 1)
Quarter: 2021Q3

REPORT INFORMATION
  Report Type: Spontaneous
  Country: ES (occurrence: ES)
  Receive Date: 20210707
  Receipt Date: 20210707
  Transmission Date: 20211014
  Serious: Yes (Other)
  Sender: FDA-Public Use
  Company Number: ES-PFIZER INC-2021820243

PATIENT
  Age: 44 Year
  Sex: Female

DRUGS (4)
  1. LEXATIN [BROMAZEPAM] [Concomitant]
     Active Substance: BROMAZEPAM
     Indication: ANXIETY
  2. CHAMPIX [Suspect]
     Active Substance: VARENICLINE TARTRATE
     Indication: SMOKING CESSATION THERAPY
     Dosage: UNK
     Dates: start: 201907
  3. CHAMPIX [Suspect]
     Active Substance: VARENICLINE TARTRATE
     Dosage: UNK
     Dates: start: 20200115
  4. LORMETAZEPAM [Concomitant]
     Active Substance: LORMETAZEPAM
     Indication: ANXIETY

REACTIONS (7)
  - Negative thoughts [Unknown]
  - Obsessive-compulsive symptom [Recovering/Resolving]
  - Emotional distress [Unknown]
  - Delusional perception [Unknown]
  - Depressed mood [Recovering/Resolving]
  - Insomnia [Unknown]
  - Anxiety [Unknown]
